FAERS Safety Report 10427940 (Version 1)
Quarter: 2014Q3

REPORT INFORMATION
  Report Type: Spontaneous
  Country: US (occurrence: None)
  Receive Date: 20140902
  Receipt Date: 20140902
  Transmission Date: 20150326
  Serious: Yes (Disabling)
  Sender: FDA-Public Use
  Company Number: None

PATIENT
  Age: 31 Year
  Sex: Female
  Weight: 52.16 kg

DRUGS (1)
  1. MIRENA [Suspect]
     Active Substance: LEVONORGESTREL
     Dates: start: 20130521, end: 20140610

REACTIONS (18)
  - Arthralgia [None]
  - Weight decreased [None]
  - Anxiety [None]
  - Palpitations [None]
  - Depression [None]
  - Dyspepsia [None]
  - Insomnia [None]
  - Hypophagia [None]
  - Abdominal pain [None]
  - Temperature intolerance [None]
  - Chest discomfort [None]
  - Hot flush [None]
  - Throat tightness [None]
  - Dizziness [None]
  - Headache [None]
  - Nausea [None]
  - Night sweats [None]
  - Paraesthesia [None]

NARRATIVE: CASE EVENT DATE: 20140610
